FAERS Safety Report 12666287 (Version 1)
Quarter: 2016Q3

REPORT INFORMATION
  Report Type: Spontaneous
  Country: US (occurrence: US)
  Receive Date: 20160818
  Receipt Date: 20160818
  Transmission Date: 20161109
  Serious: No
  Sender: FDA-Public Use
  Company Number: US-JAZZ-2016-US-005814

PATIENT
  Sex: Female

DRUGS (24)
  1. LASIX [Concomitant]
     Active Substance: FUROSEMIDE
  2. CHOLESTYRAMINE. [Concomitant]
     Active Substance: CHOLESTYRAMINE
  3. METOPROLOL SUCCINATE ER [Concomitant]
     Active Substance: METOPROLOL SUCCINATE
  4. GUANFACINE. [Concomitant]
     Active Substance: GUANFACINE
  5. KLOR-CON [Concomitant]
     Active Substance: POTASSIUM CHLORIDE
  6. NAMENDA ER [Concomitant]
  7. ARMOUR THYROID [Concomitant]
     Active Substance: THYROID, PORCINE
  8. DEPLIN [Concomitant]
     Active Substance: LEVOMEFOLATE CALCIUM
  9. DOXEPIN [Concomitant]
     Active Substance: DOXEPIN
  10. TOPAMAX [Concomitant]
     Active Substance: TOPIRAMATE
  11. BENTYL [Concomitant]
     Active Substance: DICYCLOMINE HYDROCHLORIDE
  12. METFORMIN HYDROCHLORIDE. [Concomitant]
     Active Substance: METFORMIN HYDROCHLORIDE
  13. PREVACID [Concomitant]
     Active Substance: LANSOPRAZOLE
  14. PROVIGIL [Concomitant]
     Active Substance: MODAFINIL
  15. DIAZEPAM. [Concomitant]
     Active Substance: DIAZEPAM
  16. LYRICA [Concomitant]
     Active Substance: PREGABALIN
  17. XYREM [Suspect]
     Active Substance: SODIUM OXYBATE
     Indication: CATAPLEXY
     Dosage: 3 G, QD
     Route: 048
     Dates: start: 2016
  18. FETZIMA [Suspect]
     Active Substance: LEVOMILNACIPRAN HYDROCHLORIDE
     Indication: DEPRESSION
     Dosage: 40 MG
     Route: 065
     Dates: start: 2016, end: 2016
  19. FETZIMA [Suspect]
     Active Substance: LEVOMILNACIPRAN HYDROCHLORIDE
     Dosage: 20 MG
     Route: 065
     Dates: start: 2016, end: 20160323
  20. COUMADIN [Concomitant]
     Active Substance: WARFARIN SODIUM
  21. VASCEPA [Concomitant]
     Active Substance: ICOSAPENT ETHYL
  22. XYREM [Suspect]
     Active Substance: SODIUM OXYBATE
     Indication: NARCOLEPSY
     Dosage: 3 G, BID
     Route: 048
     Dates: start: 201601, end: 2016
  23. TRAMADOL HYDROCHLORIDE. [Concomitant]
     Active Substance: TRAMADOL HYDROCHLORIDE
  24. VALSARTAN. [Concomitant]
     Active Substance: VALSARTAN

REACTIONS (5)
  - Hot flush [Recovered/Resolved]
  - Unevaluable event [Not Recovered/Not Resolved]
  - Hepatic enzyme increased [Unknown]
  - Palpitations [Recovered/Resolved]
  - Hyperhidrosis [Not Recovered/Not Resolved]

NARRATIVE: CASE EVENT DATE: 2016
